FAERS Safety Report 5753100-8 (Version None)
Quarter: 2008Q2

REPORT INFORMATION
  Report Type: 
  Country: None (occurrence: None)
  Receive Date: 20080527
  Receipt Date: 20080512
  Transmission Date: 20081010
  Serious: Yes (Death, Hospitalization, Other)
  Sender: FDA-Public Use
  Company Number: 2008-01338

PATIENT
  Age: 63 Year
  Sex: Male
  Weight: 99.8 kg

DRUGS (31)
  1. VELCADE [Suspect]
     Indication: MULTIPLE MYELOMA
     Dosage: 1.6 MG/M2, INTRAVENOUS
     Route: 042
     Dates: start: 20080222, end: 20080224
  2. REVLIMID [Suspect]
     Indication: MULTIPLE MYELOMA
     Dosage: 25 MG, ORAL
     Route: 048
     Dates: start: 20070701, end: 20080101
  3. VITAMIN D [Concomitant]
  4. DURAGESIC-100 [Concomitant]
  5. VITAMIN B12 [Concomitant]
  6. DILAUDID [Concomitant]
  7. ATROVENT [Concomitant]
  8. ALBUTEROL [Concomitant]
  9. PULMICORT [Concomitant]
  10. HYDROGEL [Concomitant]
  11. LISINOPRIL [Concomitant]
  12. POTASSIUM CHLORIDE [Concomitant]
  13. LASIX [Concomitant]
  14. PEPCID [Concomitant]
  15. MAGNESIUM OXIDE (MAGNESIUM OXIDE) [Concomitant]
  16. MULTIVITAMIN [Concomitant]
  17. SYNTHROID [Concomitant]
  18. DAPSONE [Concomitant]
  19. ACYCLOVIR [Concomitant]
  20. DEXAMETHASONE TAB [Concomitant]
  21. COLACE (DOCUSATE SODIUM) [Concomitant]
  22. REGLAN [Concomitant]
  23. REMERON [Concomitant]
  24. RYTHMOL [Concomitant]
  25. LOVENOX [Concomitant]
  26. OS-CAL (ERGOCALCIFEROL, CALCIUM) [Concomitant]
  27. NEUTRA-PHOS (SODIUM PHOSPHATE DIBASIC, POTASSIUM PHOSPHATE DIBASIC, PO [Concomitant]
  28. PRILOSEC [Concomitant]
  29. ARGININE (ARGININE) [Concomitant]
  30. NOVOLIN N [Concomitant]
  31. PAMIDRONATE DISODIUM [Concomitant]

REACTIONS (21)
  - ANAEMIA [None]
  - ASPARTATE AMINOTRANSFERASE INCREASED [None]
  - ASTHENIA [None]
  - BLOOD ALKALINE PHOSPHATASE INCREASED [None]
  - BLOOD CREATININE INCREASED [None]
  - BLOOD POTASSIUM INCREASED [None]
  - BLOOD UREA INCREASED [None]
  - DIARRHOEA [None]
  - ESCHERICHIA URINARY TRACT INFECTION [None]
  - HYPOTENSION [None]
  - INTERNATIONAL NORMALISED RATIO INCREASED [None]
  - MALIGNANT NEOPLASM PROGRESSION [None]
  - MULTI-ORGAN FAILURE [None]
  - MULTIPLE MYELOMA [None]
  - NEUROPATHY PERIPHERAL [None]
  - PCO2 DECREASED [None]
  - PLATELET COUNT DECREASED [None]
  - PNEUMONIA [None]
  - PO2 INCREASED [None]
  - SEPSIS [None]
  - SEPTIC SHOCK [None]
